FAERS Safety Report 5289355-6 (Version None)
Quarter: 2007Q2

REPORT INFORMATION
  Report Type: 
  Country: None (occurrence: None)
  Receive Date: 20070406
  Receipt Date: 20070328
  Transmission Date: 20071010
  Serious: Yes (Other)
  Sender: FDA-Public Use
  Company Number: PHEH2007US01331

PATIENT
  Age: 66 Year
  Sex: Male

DRUGS (8)
  1. ZOMETA [Suspect]
     Indication: MULTIPLE MYELOMA
     Dosage: 4MG QMO
     Route: 042
     Dates: start: 20001230, end: 20060922
  2. VINCRISTINE [Concomitant]
     Dosage: 4 CYCLES
     Dates: start: 19990201
  3. DACTINOMYCIN [Concomitant]
     Dosage: 4 CYCLES
     Dates: start: 19990201
  4. CYCLOPHOSPHAMIDE [Concomitant]
     Dosage: 4 CYCLES
     Dates: start: 19990201
  5. DIOVAN [Concomitant]
     Dosage: 160 MG, QD
  6. FUROSEMIDE [Concomitant]
     Dosage: 40 MG, QD
  7. NEXIUM [Concomitant]
     Dosage: 40 MG, QD
  8. LOTEMAX [Concomitant]
     Dosage: 0.5 MG ONE DROP RIGHT EYE
     Route: 047

REACTIONS (7)
  - BONE DISORDER [None]
  - FEELING ABNORMAL [None]
  - GASTRIC PERFORATION [None]
  - ORAL TORUS [None]
  - OSTEONECROSIS [None]
  - RECURRENT CANCER [None]
  - SURGERY [None]
